FAERS Safety Report 17410491 (Version 1)
Quarter: 2020Q1

REPORT INFORMATION
  Report Type: Spontaneous
  Country: AR (occurrence: AR)
  Receive Date: 20200212
  Receipt Date: 20200212
  Transmission Date: 20200409
  Serious: Yes (Other)
  Sender: FDA-Public Use
  Company Number: AR-009507513-2002ARG003991

PATIENT
  Sex: Male

DRUGS (1)
  1. KEYTRUDA [Suspect]
     Active Substance: PEMBROLIZUMAB
     Dosage: CYCLICAL

REACTIONS (4)
  - Granulomatous lymphadenitis [Unknown]
  - Pain [Unknown]
  - Scar [Unknown]
  - Tongue movement disturbance [Unknown]
